FAERS Safety Report 6152822-7 (Version None)
Quarter: 2009Q2

REPORT INFORMATION
  Report Type: 
  Country: None (occurrence: None)
  Receive Date: 20090409
  Receipt Date: 20090327
  Transmission Date: 20091009
  Serious: Yes (Hospitalization)
  Sender: FDA-Public Use
  Company Number: 234171J08USA

PATIENT
  Age: 55 Year
  Sex: Female

DRUGS (8)
  1. REBIF [Suspect]
     Indication: MULTIPLE SCLEROSIS
     Dosage: 44 MCG, 3 IN 1 WEEKS, SUBCUTANEOUS
     Route: 058
     Dates: start: 20071002, end: 20080408
  2. REBIF [Suspect]
     Indication: MULTIPLE SCLEROSIS
     Dosage: 44 MCG, 3 IN 1 WEEKS, SUBCUTANEOUS
     Route: 058
     Dates: start: 20080501
  3. BOTOX (BOTULINUM TOXIN TYPE A) [Concomitant]
  4. METHADONE HCL [Concomitant]
  5. ACTONEL [Concomitant]
  6. ELAVIL [Concomitant]
  7. HALCION [Concomitant]
  8. MIRAPEX [Concomitant]

REACTIONS (6)
  - DISEASE PROGRESSION [None]
  - INCOHERENT [None]
  - LOSS OF CONSCIOUSNESS [None]
  - MEMORY IMPAIRMENT [None]
  - MULTIPLE SCLEROSIS [None]
  - NARCOLEPSY [None]
